FAERS Safety Report 8838522 (Version 1)
Quarter: 2012Q4

REPORT INFORMATION
  Report Type: 
  Country: US (occurrence: US)
  Receive Date: 20121012
  Receipt Date: 20121012
  Transmission Date: 20130627
  Serious: No
  Sender: FDA-Public Use
  Company Number: US-PFIZER INC-2012254592

PATIENT
  Age: 48 Year
  Sex: Female
  Weight: 61.22 kg

DRUGS (1)
  1. PRISTIQ [Suspect]
     Indication: DEPRESSION
     Dosage: 50 mg, UNK
     Route: 048
     Dates: start: 201108

REACTIONS (4)
  - Drug intolerance [Unknown]
  - Agitation [Unknown]
  - Sleep disorder [Unknown]
  - Therapy regimen changed [Unknown]
